FAERS Safety Report 8828846 (Version 2)
Quarter: 2012Q4

REPORT INFORMATION
  Report Type: 
  Country: BR (occurrence: BR)
  Receive Date: 20121008
  Receipt Date: 20121101
  Transmission Date: 20130627
  Serious: Yes (Other)
  Sender: FDA-Public Use
  Company Number: BR-ELI_LILLY_AND_COMPANY-BR201210000061

PATIENT
  Age: 59 Year
  Sex: Female
  Weight: 82 kg

DRUGS (5)
  1. HUMULIN NPH [Suspect]
     Indication: DIABETES MELLITUS
     Dosage: UNK, unknown
     Route: 058
     Dates: start: 2009
  2. HUMULIN REGULAR [Suspect]
     Indication: DIABETES MELLITUS
     Dosage: UNK, unknown
     Route: 058
     Dates: start: 201201
  3. METFORMIN [Concomitant]
     Indication: DIABETES MELLITUS
     Dosage: UNK, unknown
     Route: 065
  4. SIMVASTATIN [Concomitant]
     Indication: HIGH DENSITY LIPOPROTEIN INCREASED
     Dosage: UNK, unknown
     Route: 065
  5. LANZOPRAZOL [Concomitant]
     Indication: GASTROINTESTINAL DISORDER
     Dosage: UNK, unknown
     Route: 065

REACTIONS (5)
  - Gallbladder disorder [Unknown]
  - Diabetic retinopathy [Unknown]
  - Visual acuity reduced [Not Recovered/Not Resolved]
  - Injection site pain [Unknown]
  - Injection site bruising [Unknown]
